FAERS Safety Report 6933023-9 (Version None)
Quarter: 2010Q3

REPORT INFORMATION
  Report Type: 
  Country: None (occurrence: None)
  Receive Date: 20100818
  Receipt Date: 20100818
  Transmission Date: 20110219
  Serious: Yes (Hospitalization, Other)
  Sender: FDA-Public Use
  Company Number: None

PATIENT
  Age: 81 Year
  Sex: Female
  Weight: 56.9 kg

DRUGS (16)
  1. METHYLPHENIDATE 2.5 MG MALINKRODT [Suspect]
     Indication: DEPRESSION
     Dosage: 2.5 MG TWICE DAILY ORAL (1 DOSE)
     Route: 048
     Dates: start: 20100408, end: 20100408
  2. POTASSIUM CHLORIDE [Concomitant]
  3. XALATAN [Concomitant]
  4. ARICEPT [Concomitant]
  5. COUMADIN [Concomitant]
  6. LOVASTATIN [Concomitant]
  7. PEPPERMINT OIL [Concomitant]
  8. ACETAMINOPHEN [Concomitant]
  9. COSOPT [Concomitant]
  10. LORAZEPAM [Concomitant]
  11. POTASSIUM CHLORIDE [Concomitant]
  12. WARFARIN [Concomitant]
  13. DONEPEZIL HCL [Concomitant]
  14. COSOPT [Concomitant]
  15. XALATAN [Concomitant]
  16. SIMVASTATIN [Concomitant]

REACTIONS (5)
  - ABNORMAL BEHAVIOUR [None]
  - CATATONIA [None]
  - COGNITIVE DISORDER [None]
  - COMMUNICATION DISORDER [None]
  - HYPOPHAGIA [None]
